FAERS Safety Report 9149481 (Version 1)
Quarter: 2013Q1

REPORT INFORMATION
  Report Type: Spontaneous
  Country: US (occurrence: US)
  Receive Date: 20130308
  Receipt Date: 20130308
  Transmission Date: 20140127
  Serious: Yes (Other)
  Sender: FDA-Public Use
  Company Number: US-PFIZER INC-2013079597

PATIENT
  Age: 38 Year
  Sex: Female
  Weight: 69.84 kg

DRUGS (2)
  1. SERTRALINE HCL [Suspect]
     Indication: ANXIETY
     Dosage: 50 MG DAILY
     Dates: start: 2011
  2. MELOXICAM [Concomitant]
     Indication: ARTHROPATHY
     Dosage: 15MG DAILY

REACTIONS (1)
  - Convulsion [Unknown]
